FAERS Safety Report 13705300 (Version 1)
Quarter: 2017Q2

REPORT INFORMATION
  Report Type: Spontaneous
  Country: GB (occurrence: GB)
  Receive Date: 20170630
  Receipt Date: 20170630
  Transmission Date: 20170830
  Serious: Yes (Other)
  Sender: FDA-Public Use
  Company Number: GB-ACCORD-053060

PATIENT
  Age: 75 Year
  Sex: Female

DRUGS (1)
  1. SERTRALINE [Suspect]
     Active Substance: SERTRALINE HYDROCHLORIDE
     Indication: DEPRESSION
     Route: 048
     Dates: start: 2012, end: 2017

REACTIONS (3)
  - Night sweats [Recovered/Resolved]
  - Dysgeusia [Recovered/Resolved]
  - Parosmia [Recovered/Resolved]
